FAERS Safety Report 6823037-1 (Version None)
Quarter: 2010Q3

REPORT INFORMATION
  Report Type: 
  Country: None (occurrence: None)
  Receive Date: 20100708
  Receipt Date: 20100630
  Transmission Date: 20110219
  Serious: Yes (Disabling)
  Sender: FDA-Public Use
  Company Number: B0659108A

PATIENT
  Sex: Male

DRUGS (12)
  1. EPZICOM [Suspect]
     Indication: HIV INFECTION
     Dosage: 1IUAX PER DAY
     Route: 048
     Dates: start: 20090617, end: 20100127
  2. INTELENCE [Suspect]
     Indication: HIV INFECTION
     Dosage: 400MG PER DAY
     Route: 048
     Dates: start: 20090617, end: 20100127
  3. RETROVIR [Suspect]
     Indication: HIV INFECTION
     Dosage: 300MG PER DAY
     Route: 048
     Dates: start: 19961227, end: 20050921
  4. EPIVIR [Suspect]
     Indication: HIV INFECTION
     Dosage: 300MG PER DAY
     Route: 048
     Dates: start: 19970228, end: 20050921
  5. NORVIR [Suspect]
     Indication: HIV INFECTION
     Dosage: 100MG PER DAY
     Route: 048
     Dates: start: 20090128, end: 20090617
  6. STOCRIN [Suspect]
     Indication: HIV INFECTION
     Dosage: 600MG PER DAY
     Route: 048
     Dates: start: 20050921, end: 20071004
  7. KALETRA [Suspect]
     Indication: HIV INFECTION
     Dosage: 4IUAX PER DAY
     Route: 048
     Dates: start: 20070221, end: 20090128
  8. LEXIVA [Suspect]
     Indication: HIV INFECTION
     Dosage: 1400MG PER DAY
     Route: 048
     Dates: start: 20090128, end: 20090617
  9. TRUVADA [Suspect]
     Indication: HIV INFECTION
     Dosage: 1IUAX PER DAY
     Route: 048
     Dates: start: 20070207
  10. ISENTRESS [Suspect]
     Indication: HIV INFECTION
     Dosage: 800MG PER DAY
     Dates: start: 20100127
  11. INVIRASE [Suspect]
     Indication: HIV INFECTION
     Dosage: 9IUAX PER DAY
     Route: 048
     Dates: start: 19971003, end: 20050921
  12. INTELENCE [Concomitant]
     Route: 048

REACTIONS (3)
  - SPASTIC PARAPLEGIA [None]
  - SPINAL CORD DISORDER [None]
  - VITAMIN B12 DEFICIENCY [None]
